FAERS Safety Report 19291786 (Version 1)
Quarter: 2021Q2

REPORT INFORMATION
  Report Type: Spontaneous
  Country: US (occurrence: US)
  Receive Date: 20210524
  Receipt Date: 20210524
  Transmission Date: 20210717
  Serious: No
  Sender: FDA-Public Use
  Company Number: US-ASTRAZENECA-2021A371184

PATIENT
  Age: 25319 Day
  Sex: Female
  Weight: 74.4 kg

DRUGS (2)
  1. VICTOZA [Concomitant]
     Active Substance: LIRAGLUTIDE
  2. BYDUREON BCISE [Suspect]
     Active Substance: EXENATIDE
     Indication: TYPE 2 DIABETES MELLITUS
     Route: 058

REACTIONS (4)
  - Injection site pain [Unknown]
  - Injection site nodule [Unknown]
  - Injection site haemorrhage [Unknown]
  - Device leakage [Unknown]

NARRATIVE: CASE EVENT DATE: 20210427
